FAERS Safety Report 10021312 (Version 1)
Quarter: 2014Q1

REPORT INFORMATION
  Report Type: Spontaneous
  Country: US (occurrence: None)
  Receive Date: 20140318
  Receipt Date: 20140318
  Transmission Date: 20141002
  Serious: Yes (Other)
  Sender: FDA-Public Use
  Company Number: None

PATIENT
  Age: 49 Year
  Sex: Female
  Weight: 70.76 kg

DRUGS (1)
  1. ZICAM NASAL GEL [Suspect]
     Indication: NASAL CONGESTION
     Dosage: 10 TO 12 HRS NASAL
     Route: 045
     Dates: start: 20140217, end: 20140219

REACTIONS (2)
  - Ageusia [None]
  - Anosmia [None]
